FAERS Safety Report 7914432-8 (Version None)
Quarter: 2011Q4

REPORT INFORMATION
  Report Type: 
  Country: None (occurrence: None)
  Receive Date: 20111110
  Receipt Date: 20111102
  Transmission Date: 20120403
  Serious: Yes (Death, Hospitalization, Other)
  Sender: FDA-Public Use
  Company Number: CLOF-1000795

PATIENT
  Age: 70 Year
  Sex: Male

DRUGS (2)
  1. DAUNORUBICIN HCL [Suspect]
     Indication: ACUTE MYELOID LEUKAEMIA
  2. EVOLTRA (CLOFARABINE) SOLUTION FOR INFUSION [Suspect]
     Indication: ACUTE MYELOID LEUKAEMIA
     Dates: start: 20091106, end: 20091110

REACTIONS (9)
  - CORYNEBACTERIUM INFECTION [None]
  - STENOTROPHOMONAS INFECTION [None]
  - GASTROINTESTINAL HAEMORRHAGE [None]
  - DRUG ADMINISTRATION ERROR [None]
  - PNEUMONIA [None]
  - SEPSIS [None]
  - ENTEROCOCCAL INFECTION [None]
  - RENAL FAILURE ACUTE [None]
  - DIALYSIS [None]
